FAERS Safety Report 9685208 (Version 1)
Quarter: 2013Q4

REPORT INFORMATION
  Report Type: Spontaneous
  Country: US (occurrence: None)
  Receive Date: 20131112
  Receipt Date: 20131112
  Transmission Date: 20140711
  Serious: Yes (Life-Threatening, Hospitalization, Disabling)
  Sender: FDA-Public Use
  Company Number: None

PATIENT
  Age: 61 Year
  Sex: Female

DRUGS (4)
  1. BOTOX [Suspect]
     Indication: TORTICOLLIS
     Dosage: =500 UNITS IM
     Route: 030
     Dates: end: 20131017
  2. LOSARTAN 100MG/HCTZ 25 MG [Concomitant]
  3. SIMVASTATIN 20 MG [Concomitant]
  4. VITAMIN D3 [Concomitant]

REACTIONS (4)
  - Dysphagia [None]
  - Dyspnoea [None]
  - Dysphagia [None]
  - Diverticulum [None]
